FAERS Safety Report 12284049 (Version 3)
Quarter: 2016Q3

REPORT INFORMATION
  Report Type: Spontaneous
  Country: US (occurrence: US)
  Receive Date: 20160419
  Receipt Date: 20160722
  Transmission Date: 20161109
  Serious: No
  Sender: FDA-Public Use
  Company Number: US-BRISTOL-MYERS SQUIBB COMPANY-BMS-2016-029403

PATIENT
  Age: 35 Year
  Sex: Male

DRUGS (9)
  1. COLACE [Concomitant]
     Active Substance: DOCUSATE SODIUM
     Indication: PRODUCT USED FOR UNKNOWN INDICATION
     Route: 065
  2. METHADONE [Suspect]
     Active Substance: METHADONE HYDROCHLORIDE
     Indication: DRUG DEPENDENCE
     Route: 065
  3. REMERON [Suspect]
     Active Substance: MIRTAZAPINE
     Indication: INSOMNIA
     Route: 065
  4. SENNALAX                           /00571901/ [Concomitant]
     Indication: PRODUCT USED FOR UNKNOWN INDICATION
     Route: 065
  5. REMERON [Suspect]
     Active Substance: MIRTAZAPINE
     Indication: DEPRESSION
  6. PAXIL [Concomitant]
     Active Substance: PAROXETINE HYDROCHLORIDE
     Indication: DEPRESSION
     Dosage: 40 MG, QD
     Route: 065
  7. SEROQUEL [Concomitant]
     Active Substance: QUETIAPINE FUMARATE
     Indication: PRODUCT USED FOR UNKNOWN INDICATION
     Dosage: 50 MG, QD
     Route: 065
  8. DAKLINZA [Suspect]
     Active Substance: DACLATASVIR
     Indication: HEPATITIS B
     Dosage: 60 MG, QD
     Route: 048
     Dates: start: 20160406, end: 20160629
  9. BUTEROL                            /00577002/ [Concomitant]
     Indication: PRODUCT USED FOR UNKNOWN INDICATION
     Route: 065

REACTIONS (4)
  - Decreased appetite [Unknown]
  - Drug dose omission [Unknown]
  - Depression [Not Recovered/Not Resolved]
  - Fatigue [Not Recovered/Not Resolved]

NARRATIVE: CASE EVENT DATE: 20160406
